FAERS Safety Report 8213187-X (Version None)
Quarter: 2012Q1

REPORT INFORMATION
  Report Type: 
  Country: None (occurrence: None)
  Receive Date: 20120228
  Receipt Date: 20110524
  Transmission Date: 20120608
  Serious: Yes (Hospitalization, Other)
  Sender: FDA-Public Use
  Company Number: RB-28023-2011

PATIENT
  Sex: Male

DRUGS (1)
  1. SUBOXONE [Suspect]
     Indication: DRUG DEPENDENCE
     Dosage: (12 MG   TRANSPLACENTAL)
     Route: 064
     Dates: start: 20100708, end: 20110408

REACTIONS (1)
  - DRUG WITHDRAWAL SYNDROME NEONATAL [None]
